FAERS Safety Report 6773069-7 (Version None)
Quarter: 2010Q2

REPORT INFORMATION
  Report Type: 
  Country: None (occurrence: None)
  Receive Date: 20100616
  Receipt Date: 20100610
  Transmission Date: 20101027
  Serious: Yes (Hospitalization, Other)
  Sender: FDA-Public Use
  Company Number: IE-PFIZER INC-2010061295

PATIENT
  Age: 15 Year
  Sex: Female
  Weight: 31.6 kg

DRUGS (1)
  1. GENOTROPIN [Suspect]
     Indication: GROWTH HORMONE DEFICIENCY
     Dosage: 1.6 MG, UNK
     Route: 058
     Dates: start: 20100505, end: 20100511

REACTIONS (2)
  - HEADACHE [None]
  - INTRAOCULAR PRESSURE INCREASED [None]
